FAERS Safety Report 16451049 (Version 2)
Quarter: 2019Q3

REPORT INFORMATION
  Report Type: Spontaneous
  Country: US (occurrence: US)
  Receive Date: 20190619
  Receipt Date: 20190815
  Transmission Date: 20191004
  Serious: No
  Sender: FDA-Public Use
  Company Number: US-PFIZER INC-2017059246

PATIENT
  Age: 57 Year
  Sex: Male
  Weight: 107.9 kg

DRUGS (2)
  1. GABAPENTIN. [Suspect]
     Active Substance: GABAPENTIN
     Dosage: 20 CAPSULES, DAILY
  2. GABAPENTIN. [Suspect]
     Active Substance: GABAPENTIN
     Indication: DIABETIC NEUROPATHY
     Dosage: 1200 MG, THREE TIMES A DAY(300MG CAPSULE-4 CAPSULES TAKEN BY MOUTH 3 TIMES DAILY)
     Route: 048
     Dates: start: 201512, end: 201610

REACTIONS (4)
  - Off label use [Unknown]
  - Overdose [Unknown]
  - Drug ineffective for unapproved indication [Unknown]
  - Pain in extremity [Unknown]
